FAERS Safety Report 5771895-4 (Version None)
Quarter: 2008Q2

REPORT INFORMATION
  Report Type: 
  Country: None (occurrence: None)
  Receive Date: 20080613
  Receipt Date: 20080610
  Transmission Date: 20081010
  Serious: Yes (Other)
  Sender: FDA-Public Use
  Company Number: B0524710A

PATIENT
  Age: 30 Year
  Sex: Male

DRUGS (2)
  1. HEPTODIN [Suspect]
     Dosage: 100MG PER DAY
     Route: 048
     Dates: start: 20080131
  2. TRANSFER FACTOR [Concomitant]
     Route: 048
     Dates: start: 20080501

REACTIONS (2)
  - DEAFNESS NEUROSENSORY [None]
  - EAR DISCOMFORT [None]
